FAERS Safety Report 5744325-6 (Version None)
Quarter: 2008Q2

REPORT INFORMATION
  Report Type: 
  Country: None (occurrence: None)
  Receive Date: 20080520
  Receipt Date: 20080508
  Transmission Date: 20081010
  Serious: Yes (Other)
  Sender: FDA-Public Use
  Company Number: AU-ROCHE-563282

PATIENT
  Sex: Female

DRUGS (2)
  1. XELODA [Suspect]
     Indication: DRUG USE FOR UNKNOWN INDICATION
     Dosage: THE PATIENT TOOK 3X500 MG TABLET IN MORNING AND AT NIGHT FOR TWO WEEKS.
     Route: 065
  2. XELODA [Suspect]
     Dosage: DOSE INCREASED TO 4X500 MG IN THE MORNING AND 3X 500 MG AT NIGHT
     Route: 065

REACTIONS (5)
  - DIARRHOEA [None]
  - NAUSEA [None]
  - PALMAR-PLANTAR ERYTHRODYSAESTHESIA SYNDROME [None]
  - RASH [None]
  - SKIN CANCER [None]
